FAERS Safety Report 25865949 (Version 2)
Quarter: 2025Q4

REPORT INFORMATION
  Report Type: Report from Study
  Country: EU (occurrence: EU)
  Receive Date: 20250930
  Receipt Date: 20251027
  Transmission Date: 20260117
  Serious: Yes (Hospitalization)
  Sender: BOEHRINGER INGELHEIM
  Company Number: EU-ABBVIE-6384926

PATIENT
  Age: 55 Year
  Sex: Male
  Weight: 80 kg

DRUGS (12)
  1. PRAMIPEXOLE [Suspect]
     Active Substance: PRAMIPEXOLE
     Indication: Product used for unknown indication
     Dates: start: 2025, end: 2025
  2. FOSCARBIDOPA\FOSLEVODOPA [Suspect]
     Active Substance: FOSCARBIDOPA\FOSLEVODOPA
     Indication: Parkinson^s disease
     Dosage: CRN: 0.47 ML/H, CR: 0.52 ML/H, CRH: 0.55 ML/H, ED: 0.20 ML. ?OVER 24 HOURS
     Route: 058
     Dates: start: 20250430, end: 202507
  3. FOSCARBIDOPA\FOSLEVODOPA [Suspect]
     Active Substance: FOSCARBIDOPA\FOSLEVODOPA
     Dosage: DOSE REDUCED, SET AT MINIMUM 0.30 ML/H?CRN: 0.30 ML/H, CR: 0.30 ML/H, CRH: 0.30 ML/H, ED: 0.10 ML.
     Route: 058
     Dates: start: 202507, end: 202507
  4. FOSCARBIDOPA\FOSLEVODOPA [Suspect]
     Active Substance: FOSCARBIDOPA\FOSLEVODOPA
     Dosage: DOSE INCREASED?CRN: 0.48 ML/H, CR: 0.52 ML/H, CRH: 0.57 ML/H, ED: 0.00ML
     Route: 058
  5. ONGENTYS [Suspect]
     Active Substance: OPICAPONE
     Indication: Product used for unknown indication
     Dates: start: 2025, end: 2025
  6. ESCITALOPRAM [Concomitant]
     Active Substance: ESCITALOPRAM OXALATE
     Indication: Product used for unknown indication
  7. QUETIAPINE [Concomitant]
     Active Substance: QUETIAPINE
     Indication: Product used for unknown indication
     Dosage: RETARD 50 MG 0-0-1-0
  8. QUETIAPINE [Concomitant]
     Active Substance: QUETIAPINE
     Dosage: 25 MG 0-0-0-1
  9. VITAMIN B6 [Concomitant]
     Active Substance: PYRIDOXINE HYDROCHLORIDE
     Indication: Product used for unknown indication
     Dosage: 20 MG 1-0-0-0
  10. VITAMIN B12 [Concomitant]
     Active Substance: CYANOCOBALAMIN
     Indication: Product used for unknown indication
     Route: 058
  11. VITAMIN B12 [Concomitant]
     Active Substance: CYANOCOBALAMIN
     Dosage: 1.000 MG 1X MONTHLY
     Route: 058
  12. XADAGO [Concomitant]
     Active Substance: SAFINAMIDE MESYLATE
     Indication: Product used for unknown indication

REACTIONS (28)
  - Mental disorder [Not Recovered/Not Resolved]
  - Psychotic disorder [Unknown]
  - Delirium [Unknown]
  - Therapeutic product effect variable [Unknown]
  - Hypoglycaemia [Unknown]
  - Arthralgia [Recovering/Resolving]
  - Malabsorption [Unknown]
  - Dopamine agonist withdrawal syndrome [Unknown]
  - Dyskinesia [Recovering/Resolving]
  - Dysarthria [Unknown]
  - Muscle rigidity [Unknown]
  - Resting tremor [Unknown]
  - Action tremor [Unknown]
  - Postural tremor [Unknown]
  - Bradykinesia [Unknown]
  - Hypokinesia [Unknown]
  - Fine motor skill dysfunction [Unknown]
  - Reduced facial expression [Unknown]
  - Parkinsonian gait [Unknown]
  - Insulin C-peptide increased [Unknown]
  - Investigation abnormal [Unknown]
  - Aspiration [Unknown]
  - Anxiety [Unknown]
  - Suspiciousness [Unknown]
  - Depression [Unknown]
  - Walking aid user [Unknown]
  - Paranoia [Unknown]
  - Spinal stenosis [Unknown]

NARRATIVE: CASE EVENT DATE: 20250101
